FAERS Safety Report 20841199 (Version 4)
Quarter: 2022Q2

REPORT INFORMATION
  Report Type: Spontaneous
  Country: JP (occurrence: JP)
  Receive Date: 20220517
  Receipt Date: 20220609
  Transmission Date: 20220721
  Serious: Yes (Other)
  Sender: FDA-Public Use
  Company Number: JP-MSD-M2022-09909

PATIENT
  Age: 6 Decade
  Sex: Female

DRUGS (3)
  1. KEYTRUDA [Suspect]
     Active Substance: PEMBROLIZUMAB
     Indication: Endometrial adenocarcinoma
     Dosage: 200 MILLIGRAM, Q3W
     Route: 041
     Dates: start: 20220127, end: 2022
  2. LENVATINIB MESYLATE [Suspect]
     Active Substance: LENVATINIB MESYLATE
     Indication: Endometrial adenocarcinoma
     Dosage: 20 MILLIGRAM, QD
     Route: 048
     Dates: start: 20220127, end: 20220602
  3. ELCATONIN [Concomitant]
     Active Substance: ELCATONIN
     Dosage: UNK
     Route: 051

REACTIONS (12)
  - Malignant neoplasm progression [Unknown]
  - Tumour pseudoprogression [Unknown]
  - Hypercalcaemia [Unknown]
  - Immune-mediated hypothyroidism [Recovered/Resolved]
  - Pyrexia [Recovered/Resolved]
  - Proteinuria [Not Recovered/Not Resolved]
  - Palmar-plantar erythrodysaesthesia syndrome [Unknown]
  - Diarrhoea [Unknown]
  - Hypertension [Unknown]
  - Malaise [Unknown]
  - Decreased appetite [Unknown]
  - Rash [Unknown]

NARRATIVE: CASE EVENT DATE: 20220101
